FAERS Safety Report 8426364-X (Version None)
Quarter: 2012Q2

REPORT INFORMATION
  Report Type: 
  Country: None (occurrence: None)
  Receive Date: 20120611
  Receipt Date: 20120530
  Transmission Date: 20120825
  Serious: Yes (Hospitalization, Other)
  Sender: FDA-Public Use
  Company Number: US-SANOFI-AVENTIS-2012SA039076

PATIENT
  Age: 69 Year
  Sex: Female

DRUGS (8)
  1. ALL OTHER THERAPEUTIC PRODUCTS [Concomitant]
  2. LANTUS [Suspect]
     Route: 058
     Dates: start: 20110101, end: 20120524
  3. LANTUS [Suspect]
     Route: 058
     Dates: start: 20110101, end: 20120524
  4. LANTUS [Suspect]
     Dosage: DOSE:27 UNIT(S)
     Route: 058
     Dates: start: 20120525
  5. SOLOSTAR [Suspect]
     Dates: start: 20110101
  6. HUMALOG [Concomitant]
  7. SOLOSTAR [Suspect]
     Dates: start: 20110101
  8. LANTUS [Suspect]
     Dosage: DOSE:27 UNIT(S)
     Route: 058
     Dates: start: 20120525

REACTIONS (4)
  - LUNG DISORDER [None]
  - CORONARY ARTERY DISEASE [None]
  - STAPHYLOCOCCAL INFECTION [None]
  - DYSPNOEA [None]
